FAERS Safety Report 21640089 (Version 1)
Quarter: 2022Q4

REPORT INFORMATION
  Report Type: Spontaneous
  Country: CZ (occurrence: CZ)
  Receive Date: 20221124
  Receipt Date: 20221124
  Transmission Date: 20230113
  Serious: Yes (Other)
  Sender: FDA-Public Use
  Company Number: CZ-PFIZER INC-PV202200102015

PATIENT
  Age: 61 Year
  Sex: Female

DRUGS (13)
  1. METHYLPREDNISOLONE [Suspect]
     Active Substance: METHYLPREDNISOLONE
     Indication: Asthma
     Dosage: 16 MG, AS NEEDED, DURING EXACERBATIONS
  2. BECLOMETHASONE [Suspect]
     Active Substance: BECLOMETHASONE
     Dosage: 2DF, 2X/DAY TWO INHALATIONS (2-0-2)
     Route: 055
  3. FLUTICASONE PROPIONATE\SALMETEROL XINAFOATE [Suspect]
     Active Substance: FLUTICASONE PROPIONATE\SALMETEROL XINAFOATE
     Indication: Asthma
     Dosage: 2 DF, 2X/DAY (TWO INHALATIONS IN THE MORNING AND TWO IN THE EVENING)
     Route: 055
  4. OLODATEROL HYDROCHLORIDE\TIOTROPIUM BROMIDE MONOHYDRATE [Concomitant]
     Active Substance: OLODATEROL HYDROCHLORIDE\TIOTROPIUM BROMIDE MONOHYDRATE
     Dosage: 2 DF, 1X/DAY IN THE MORNING (2-0-0)
     Route: 055
  5. MONTELUKAST [Concomitant]
     Active Substance: MONTELUKAST SODIUM
     Dosage: 10 MG, 1X/DAY IN THE EVENING (0-0-1)
     Route: 048
  6. LEVOCETIRIZINE DIHYDROCHLORIDE [Concomitant]
     Active Substance: LEVOCETIRIZINE DIHYDROCHLORIDE
     Dosage: 5 MG, 1X/DAY IN THE EVENING (0-0-1)
     Route: 048
  7. BUDESONIDE [Concomitant]
     Active Substance: BUDESONIDE
     Dosage: 2 DF, 1X/DAY IN THE MORNING (2-0-0)
     Route: 045
  8. AMLODIPINE [Concomitant]
     Active Substance: AMLODIPINE BESYLATE
     Dosage: UNK
  9. LEVOTHYROXINE [Concomitant]
     Active Substance: LEVOTHYROXINE
     Dosage: UNK
  10. INDAPAMIDE [Concomitant]
     Active Substance: INDAPAMIDE
     Dosage: UNK
  11. VITAMIN D NOS [Concomitant]
     Active Substance: VITAMIN D NOS
     Dosage: UNK
  12. TIOTROPIUM [Concomitant]
     Active Substance: TIOTROPIUM
     Indication: Asthma
     Dosage: 2 DF, 1X/DAY (IN THE MORNING)
  13. VINCENTKA [Concomitant]
     Route: 055

REACTIONS (2)
  - Respiratory tract infection [Recovered/Resolved]
  - Lower respiratory tract congestion [Recovered/Resolved]
